FAERS Safety Report 13390860 (Version 1)
Quarter: 2017Q1

REPORT INFORMATION
  Report Type: Spontaneous
  Country: CN (occurrence: CN)
  Receive Date: 20170331
  Receipt Date: 20170331
  Transmission Date: 20170429
  Serious: Yes (Hospitalization, Other)
  Sender: FDA-Public Use
  Company Number: PHHY2017CN044949

PATIENT
  Age: 74 Year
  Sex: Male

DRUGS (4)
  1. DIOVAN [Suspect]
     Active Substance: VALSARTAN
     Indication: HYPERTENSION
     Dosage: UNK
     Route: 048
  2. CONCOR [Suspect]
     Active Substance: BISOPROLOL FUMARATE
     Indication: BLOOD PRESSURE INCREASED
     Dosage: UNK
     Route: 065
  3. NORVASC [Suspect]
     Active Substance: AMLODIPINE BESYLATE
     Indication: BLOOD PRESSURE INCREASED
     Dosage: UNK
     Route: 065
  4. FUROSEMIDE. [Suspect]
     Active Substance: FUROSEMIDE
     Indication: BLOOD PRESSURE INCREASED
     Dosage: 20 MG, BID
     Route: 065

REACTIONS (49)
  - Cough [Unknown]
  - Micturition urgency [Unknown]
  - Benign prostatic hyperplasia [Unknown]
  - Cardiac failure [Unknown]
  - Blindness [Unknown]
  - Melaena [Unknown]
  - Nasopharyngitis [Unknown]
  - Abdominal distension [Unknown]
  - Eructation [Unknown]
  - Dyspnoea [Unknown]
  - Type 2 diabetes mellitus [Unknown]
  - Pollakiuria [Unknown]
  - Peripheral arterial occlusive disease [Unknown]
  - Tricuspid valve incompetence [Unknown]
  - Renal cyst [Unknown]
  - Gastric haemorrhage [Unknown]
  - Pyrexia [Unknown]
  - Night sweats [Unknown]
  - Palpitations [Unknown]
  - Regurgitation [Unknown]
  - Poor quality sleep [Unknown]
  - Chest discomfort [Unknown]
  - Oedema peripheral [Unknown]
  - Hypertension [Unknown]
  - Lung disorder [Unknown]
  - Embolism venous [Unknown]
  - Haematochezia [Unknown]
  - Back disorder [Unknown]
  - Nausea [Unknown]
  - Lung infection [Unknown]
  - Diabetic nephropathy [Unknown]
  - Diabetic retinopathy [Unknown]
  - Hyperuricaemia [Unknown]
  - Atrial fibrillation [Unknown]
  - Hypertensive heart disease [Unknown]
  - Mitral valve incompetence [Unknown]
  - Pericardial effusion [Unknown]
  - Drug effect decreased [Unknown]
  - Productive cough [Unknown]
  - Arrhythmia [Unknown]
  - Cardiomegaly [Unknown]
  - Abdominal pain [Unknown]
  - Gouty arthritis [Unknown]
  - Vision blurred [Unknown]
  - Chronic obstructive pulmonary disease [Unknown]
  - Cor pulmonale [Unknown]
  - Nephrolithiasis [Unknown]
  - Dysuria [Unknown]
  - Vomiting [Unknown]

NARRATIVE: CASE EVENT DATE: 2015
